FAERS Safety Report 5943408-5 (Version None)
Quarter: 2008Q4

REPORT INFORMATION
  Report Type: 
  Country: None (occurrence: None)
  Receive Date: 20081104
  Receipt Date: 20081020
  Transmission Date: 20090506
  Serious: Yes (Other)
  Sender: FDA-Public Use
  Company Number: 2008S1018971

PATIENT
  Sex: Male

DRUGS (3)
  1. BISOPROLOL FUMARATE [Suspect]
     Indication: DRUG USE FOR UNKNOWN INDICATION
     Dosage: 5 MG; DAILY; ORAL
     Route: 048
  2. CARVEDILOL [Suspect]
     Indication: DRUG USE FOR UNKNOWN INDICATION
  3. ASPIRIN [Concomitant]

REACTIONS (3)
  - EYELID OEDEMA [None]
  - HYPERSENSITIVITY [None]
  - RASH PRURITIC [None]
